FAERS Safety Report 13932425 (Version 1)
Quarter: 2017Q3

REPORT INFORMATION
  Report Type: Report from Study
  Country: US (occurrence: US)
  Receive Date: 20170904
  Receipt Date: 20170904
  Transmission Date: 20171127
  Serious: Yes (Death)
  Sender: FDA-Public Use
  Company Number: US-TAKEDA-2017MPI007514

PATIENT
  Sex: Female

DRUGS (4)
  1. VELCADE [Suspect]
     Active Substance: BORTEZOMIB
     Dosage: 1 MG, UNK
     Route: 058
     Dates: start: 20170607
  2. VELCADE [Suspect]
     Active Substance: BORTEZOMIB
     Dosage: 1 MG, UNK
     Route: 058
     Dates: start: 20170601
  3. VELCADE [Suspect]
     Active Substance: BORTEZOMIB
     Indication: PRODUCT USED FOR UNKNOWN INDICATION
     Dosage: 1 MG, UNK
     Route: 058
  4. VELCADE [Suspect]
     Active Substance: BORTEZOMIB
     Dosage: 1 MG, UNK
     Route: 058
     Dates: start: 20170524

REACTIONS (1)
  - Death [Fatal]
